FAERS Safety Report 18044198 (Version 1)
Quarter: 2020Q3

REPORT INFORMATION
  Report Type: Spontaneous
  Country: US (occurrence: US)
  Receive Date: 20200720
  Receipt Date: 20200720
  Transmission Date: 20201103
  Serious: Yes (Disabling, Other)
  Sender: FDA-Public Use
  Company Number: US-NOVOPROD-740620

PATIENT
  Sex: Female

DRUGS (1)
  1. ACTIVELLA [Suspect]
     Active Substance: ESTRADIOL\NORETHINDRONE ACETATE
     Indication: HORMONE THERAPY
     Dosage: UNK
     Route: 048

REACTIONS (3)
  - Osteoarthritis [Not Recovered/Not Resolved]
  - Constipation [Unknown]
  - Lung disorder [Not Recovered/Not Resolved]
